FAERS Safety Report 10645551 (Version 1)
Quarter: 2014Q4

REPORT INFORMATION
  Report Type: Spontaneous
  Country: FR (occurrence: FR)
  Receive Date: 20141211
  Receipt Date: 20141211
  Transmission Date: 20150529
  Serious: Yes (Congenital Anomaly)
  Sender: FDA-Public Use
  Company Number: FR-TEVA-526741ISR

PATIENT
  Age: 39 Year
  Sex: Female

DRUGS (5)
  1. AMLOR 5MG [Concomitant]
  2. KARDEGIC 75MG [Concomitant]
  3. LEVOTHYROX 100 MICROGRAM [Concomitant]
     Dosage: 100 MICROGRAM DAILY; IN THE EVENING
  4. TYSABRI [Suspect]
     Active Substance: NATALIZUMAB
     Indication: MULTIPLE SCLEROSIS
     Dosage: .0333 DOSAGE FORMS DAILY;
     Route: 041
     Dates: start: 201206, end: 201307
  5. COPAXONE [Suspect]
     Active Substance: GLATIRAMER ACETATE
     Indication: MULTIPLE SCLEROSIS
     Route: 058
     Dates: start: 201307

REACTIONS (4)
  - Pregnancy [None]
  - Blighted ovum [Recovered/Resolved with Sequelae]
  - Exposure during pregnancy [None]
  - Abortion induced [Recovered/Resolved with Sequelae]

NARRATIVE: CASE EVENT DATE: 201311
